FAERS Safety Report 4844011-0 (Version None)
Quarter: 2005Q4

REPORT INFORMATION
  Report Type: 
  Country: None (occurrence: None)
  Receive Date: 20051202
  Receipt Date: 20050928
  Transmission Date: 20060501
  Serious: No
  Sender: FDA-Public Use
  Company Number: US-GLAXOSMITHKLINE-A0576212A

PATIENT
  Age: 47 Year
  Sex: Female

DRUGS (3)
  1. AUGMENTIN [Suspect]
     Dosage: 2000MG TWICE PER DAY
     Route: 048
     Dates: start: 20050923, end: 20050924
  2. SYNTHROID [Concomitant]
  3. GUAIFENESIN COUGH SYRUP [Concomitant]

REACTIONS (3)
  - ABDOMINAL PAIN [None]
  - DIARRHOEA [None]
  - VOMITING [None]
